FAERS Safety Report 17842155 (Version 1)
Quarter: 2020Q2

REPORT INFORMATION
  Report Type: Spontaneous
  Country: GB (occurrence: GB)
  Receive Date: 20200529
  Receipt Date: 20200529
  Transmission Date: 20200714
  Serious: Yes (Death)
  Sender: FDA-Public Use
  Company Number: GB-TEVA-2020-GB-1240724

PATIENT
  Age: 54 Year
  Sex: Female
  Weight: 74 kg

DRUGS (28)
  1. CALCICHEW D3 [Concomitant]
     Active Substance: CALCIUM\CHOLECALCIFEROL
  2. OMEPRAZOLE SODIUM [Concomitant]
     Active Substance: OMEPRAZOLE SODIUM
  3. CEFTAZIDIME. [Interacting]
     Active Substance: CEFTAZIDIME
     Dosage: 4.5 GRAM
     Dates: start: 20200131
  4. AVIBACTAM [Interacting]
     Active Substance: AVIBACTAM
     Dosage: 4.5 GRAM
     Dates: start: 20200131
  5. NYSTATIN. [Concomitant]
     Active Substance: NYSTATIN
  6. MORPHINE SULFATE. [Concomitant]
     Active Substance: MORPHINE SULFATE
  7. CEFTAZIDIME. [Interacting]
     Active Substance: CEFTAZIDIME
     Dosage: 7.5 GRAM
  8. DR REDDYS LABS UK CETIRIZINE [Concomitant]
  9. PREDNISOLONE. [Concomitant]
     Active Substance: PREDNISOLONE
  10. PRAVASTATIN. [Concomitant]
     Active Substance: PRAVASTATIN
  11. TIGECYCLINE. [Interacting]
     Active Substance: TIGECYCLINE
     Indication: MYCOBACTERIAL INFECTION
     Dosage: 100 MG
     Route: 042
     Dates: start: 20200128, end: 20200205
  12. GABAPENTIN. [Concomitant]
     Active Substance: GABAPENTIN
  13. CHLORPHENAMINE [Concomitant]
     Active Substance: CHLORPHENIRAMINE MALEATE
  14. TACROLIMUS. [Concomitant]
     Active Substance: TACROLIMUS
  15. RAMIPRIL. [Concomitant]
     Active Substance: RAMIPRIL
  16. AZITHROMYCIN ANHYDROUS. [Interacting]
     Active Substance: AZITHROMYCIN ANHYDROUS
     Dosage: 500 MG
     Route: 042
  17. AVIBACTAM [Interacting]
     Active Substance: AVIBACTAM
     Dosage: 7.5 GRAM
  18. MEROPENEM. [Interacting]
     Active Substance: MEROPENEM
     Dosage: 6 GRAM
  19. ACCORD-UK CO-TRIMOXAZOLE [Concomitant]
     Active Substance: SULFAMETHOXAZOLE\TRIMETHOPRIM
  20. TINZAPARIN SODIUM [Concomitant]
     Active Substance: TINZAPARIN SODIUM
  21. LEVOMEPROMAZINE [Concomitant]
     Active Substance: LEVOMEPROMAZINE
  22. ONDANSETRON HYDROCHLORIDE. [Concomitant]
     Active Substance: ONDANSETRON HYDROCHLORIDE
  23. AZITHROMYCIN ANHYDROUS. [Suspect]
     Active Substance: AZITHROMYCIN ANHYDROUS
     Dosage: 500 MG
     Route: 048
     Dates: start: 20200130
  24. MEROPENEM. [Interacting]
     Active Substance: MEROPENEM
     Dosage: 4 GRAM
     Dates: start: 20200131
  25. DOSULEPIN HYDROCHLORIDE [Concomitant]
     Active Substance: DOTHIEPIN HYDROCHLORIDE
     Indication: DEPRESSION
  26. RANITIDINE. [Concomitant]
     Active Substance: RANITIDINE
  27. LORAZEPAM. [Concomitant]
     Active Substance: LORAZEPAM
  28. PARACETAMOL [Concomitant]
     Active Substance: ACETAMINOPHEN

REACTIONS (6)
  - Drug interaction [Fatal]
  - Nausea [Fatal]
  - Pancreatitis acute [Fatal]
  - Abdominal pain upper [Fatal]
  - Pulseless electrical activity [Fatal]
  - Cardiac arrest [Fatal]

NARRATIVE: CASE EVENT DATE: 20200205
